FAERS Safety Report 14937293 (Version 1)
Quarter: 2018Q2

REPORT INFORMATION
  Report Type: Spontaneous
  Country: GB (occurrence: GB)
  Receive Date: 20180525
  Receipt Date: 20180525
  Transmission Date: 20180711
  Serious: Yes (Other)
  Sender: FDA-Public Use
  Company Number: GB-TEVA-2018-GB-897736

PATIENT
  Age: 50 Year
  Sex: Female
  Weight: 76.2 kg

DRUGS (1)
  1. SODIUM VALPROATE [Suspect]
     Active Substance: VALPROATE SODIUM
     Route: 048

REACTIONS (3)
  - Peripheral coldness [Unknown]
  - Infrequent bowel movements [Unknown]
  - Somnolence [Recovered/Resolved]

NARRATIVE: CASE EVENT DATE: 20180320
